FAERS Safety Report 9454748 (Version 3)
Quarter: 2013Q4

REPORT INFORMATION
  Report Type: Spontaneous
  Country: US (occurrence: US)
  Receive Date: 20130812
  Receipt Date: 20131230
  Transmission Date: 20140711
  Serious: Yes (Hospitalization, Other)
  Sender: FDA-Public Use
  Company Number: US-009507513-1308USA005240

PATIENT
  Sex: Female

DRUGS (1)
  1. NUVARING [Suspect]
     Indication: CONTRACEPTION
     Dosage: UNK
     Route: 067
     Dates: start: 2006, end: 2012

REACTIONS (9)
  - White blood cell count increased [Unknown]
  - Portal vein thrombosis [Not Recovered/Not Resolved]
  - Mesenteric vein thrombosis [Not Recovered/Not Resolved]
  - Deep vein thrombosis [Unknown]
  - Ovarian cyst [Unknown]
  - Migraine [Unknown]
  - Primary hypothyroidism [Unknown]
  - Thrombocytosis [Unknown]
  - Platelet count increased [Unknown]
